FAERS Safety Report 8600084-0 (Version None)
Quarter: 2012Q3

REPORT INFORMATION
  Report Type: 
  Country: None (occurrence: None)
  Receive Date: 20120816
  Receipt Date: 20120810
  Transmission Date: 20120928
  Serious: Yes (Other)
  Sender: FDA-Public Use
  Company Number: CA-AMGEN-CANSP2012051054

PATIENT
  Sex: Female
  Weight: 63.492 kg

DRUGS (7)
  1. NORVASC [Concomitant]
  2. PROLIA [Suspect]
     Indication: PRODUCT USED FOR UNKNOWN INDICATION
     Dosage: UNK UNK, ONE TIME DOSE
     Route: 058
  3. EZETIMIBE [Concomitant]
  4. CLONAZEPAM [Concomitant]
  5. TYLENOL (CAPLET) [Concomitant]
  6. ATENOLOL [Concomitant]
  7. PANTOPRAZOLE SODIUM [Concomitant]

REACTIONS (14)
  - ABDOMINAL PAIN [None]
  - BACK PAIN [None]
  - WEIGHT DECREASED [None]
  - AMNESIA [None]
  - LIP DISORDER [None]
  - CONFUSIONAL STATE [None]
  - MALAISE [None]
  - PAIN [None]
  - DYSPEPSIA [None]
  - EATING DISORDER [None]
  - FATIGUE [None]
  - MYALGIA [None]
  - TRISMUS [None]
  - DECREASED APPETITE [None]
